FAERS Safety Report 18031507 (Version 4)
Quarter: 2021Q1

REPORT INFORMATION
  Report Type: Spontaneous
  Country: US (occurrence: US)
  Receive Date: 20200716
  Receipt Date: 20210311
  Transmission Date: 20210419
  Serious: Yes (Disabling)
  Sender: FDA-Public Use
  Company Number: US-PFIZER INC-2020270947

PATIENT
  Age: 62 Year
  Sex: Female
  Weight: 84.81 kg

DRUGS (1)
  1. CELECOXIB. [Suspect]
     Active Substance: CELECOXIB
     Indication: ARTHRITIS
     Dosage: UNK

REACTIONS (5)
  - Drug ineffective [Unknown]
  - Pain [Unknown]
  - Malaise [Unknown]
  - Muscular weakness [Not Recovered/Not Resolved]
  - Finger deformity [Not Recovered/Not Resolved]
